FAERS Safety Report 8953607 (Version 4)
Quarter: 2013Q1

REPORT INFORMATION
  Report Type: Report from Study
  Country: US (occurrence: US)
  Receive Date: 20121206
  Receipt Date: 20130104
  Transmission Date: 20140127
  Serious: Yes (Other)
  Sender: FDA-Public Use
  Company Number: US-PFIZER INC-2012289853

PATIENT
  Age: 12 Year
  Sex: Male
  Weight: 36.1 kg

DRUGS (20)
  1. GEMTUZUMAB OZOGAMICIN [Suspect]
     Indication: ACUTE MYELOID LEUKAEMIA
     Dosage: 11 MG GIVEN IN 100 ML NS, SINGLE DOSE
     Route: 042
     Dates: start: 20121116, end: 20121116
  2. CYTARABINE [Suspect]
     Indication: ACUTE MYELOID LEUKAEMIA
     Dosage: 3700 MG, ONCE DAILY
     Route: 042
     Dates: start: 20121110, end: 20121114
  3. AMPHOTERICIN B [Suspect]
     Indication: FUNGAL INFECTION
     Dosage: 180 MG, ONCE DAILY
     Route: 042
     Dates: start: 20121029
  4. ACETAMINOPHEN [Concomitant]
     Indication: PREMEDICATION
     Dosage: 500 MG, ONCE DAILY
     Route: 048
     Dates: start: 20121110
  5. ACETAMINOPHEN [Concomitant]
     Dosage: 325 MG, ONCE
     Route: 048
     Dates: start: 20121116, end: 20121116
  6. APREPITANT [Concomitant]
     Indication: ANTIEMETIC SUPPORTIVE CARE
     Dosage: 125 MG, ONCE
     Route: 048
     Dates: start: 20121116, end: 20121116
  7. APREPITANT [Concomitant]
     Dosage: 80 MG, ONCE DAILY
     Route: 048
     Dates: start: 20121117, end: 20121118
  8. DEX 0.1% EYE DROP [Concomitant]
     Indication: PROPHYLAXIS
     Dosage: 2 DROPS, EVERY 6 HOURS
     Dates: start: 20121110, end: 20121115
  9. DRONABINOL [Concomitant]
     Indication: ANTIEMETIC SUPPORTIVE CARE
     Dosage: 2.5 MG, TWICE DAILY
     Route: 048
     Dates: start: 20121110
  10. LINEZOLID [Concomitant]
     Indication: PROPHYLAXIS
     Dosage: 360 MG, EVERY 12 HOURS
     Route: 042
     Dates: start: 20121110
  11. ONDANSETRON [Concomitant]
     Indication: ANTIEMETIC SUPPORTIVE CARE
     Dosage: 6 MG, EVERY 6 HOURS
     Route: 042
     Dates: start: 20121110
  12. PANTOPRAZOLE [Concomitant]
     Indication: ABDOMINAL PAIN
     Dosage: 40 MG, ONCE DAILY
     Route: 042
     Dates: start: 20121110
  13. PANTOPRAZOLE [Concomitant]
     Indication: GASTROOESOPHAGEAL REFLUX DISEASE
  14. SEPTRA [Concomitant]
     Indication: PROPHYLAXIS
     Dosage: 80 MG, TWICE DAILY, ON FRIDAY, SATURDAY AND SUNDAY
     Route: 048
     Dates: start: 20121110
  15. DIPHENHYDRAMINE [Concomitant]
     Indication: PREMEDICATION
     Dosage: 35 MG, EVERY 6 HOURS, AS NEEDED
     Route: 042
     Dates: start: 20121110
  16. DIPHENHYDRAMINE [Concomitant]
     Indication: PROPHYLAXIS OF NAUSEA AND VOMITING
     Dosage: 35 MG, ONCE
     Route: 042
     Dates: start: 20121116, end: 20121116
  17. LORAZEPAM [Concomitant]
     Indication: PROPHYLAXIS OF NAUSEA AND VOMITING
     Dosage: 0.75 MG, EVERY 6 HOURS, AS NEEDED
     Route: 042
     Dates: start: 20121110
  18. METOCLOPRAMIDE [Concomitant]
     Indication: PROPHYLAXIS OF NAUSEA AND VOMITING
     Dosage: 10 MG, EVERY 6 HOURS, AS NEEDED
     Route: 042
     Dates: start: 20121110
  19. OXYCODONE [Concomitant]
     Indication: PAIN
     Dosage: 5 MG, EVERY 4 HOURS, AS NEEDED
     Route: 048
     Dates: start: 20121111
  20. MORPHINE [Concomitant]
     Indication: BREAKTHROUGH PAIN
     Dosage: 2 MG, EVERY 4 HOURS, AS NEEDED
     Route: 042
     Dates: start: 20121123, end: 20121123

REACTIONS (15)
  - Pyrexia [Recovered/Resolved]
  - Sinus tachycardia [Recovered/Resolved]
  - Abdominal pain [Recovered/Resolved]
  - Febrile neutropenia [Recovered/Resolved]
  - Hypokalaemia [Not Recovered/Not Resolved]
  - Hypocalcaemia [Recovered/Resolved]
  - Hypomagnesaemia [Recovered/Resolved]
  - Hyperglycaemia [Recovered/Resolved]
  - Hypertension [Recovered/Resolved]
  - Anaemia [Not Recovered/Not Resolved]
  - Thrombocytopenia [Not Recovered/Not Resolved]
  - Headache [Recovered/Resolved]
  - Ventricular hypertrophy [Not Recovered/Not Resolved]
  - Epistaxis [Recovered/Resolved]
  - Rash maculo-papular [Recovered/Resolved]
